FAERS Safety Report 25369177 (Version 1)
Quarter: 2025Q2

REPORT INFORMATION
  Report Type: Spontaneous
  Country: PL (occurrence: PL)
  Receive Date: 20250528
  Receipt Date: 20250528
  Transmission Date: 20250716
  Serious: Yes (Disabling, Other)
  Sender: MYLAN
  Company Number: PL-CELONPHARMA-24_2025_QUETIAPINE

PATIENT
  Age: 55 Year
  Sex: Female
  Weight: 92 kg

DRUGS (32)
  1. PREGABALIN [Suspect]
     Active Substance: PREGABALIN
     Indication: Neuropathy peripheral
     Dosage: 25 MILLIGRAM, Q8H (INITIAL DOSE WAS 25 MG THREE TIMES A DAY)
  2. PREGABALIN [Suspect]
     Active Substance: PREGABALIN
     Indication: Anxiety
     Dosage: 25 MILLIGRAM, Q8H (INITIAL DOSE WAS 25 MG THREE TIMES A DAY)
  3. PREGABALIN [Suspect]
     Active Substance: PREGABALIN
     Dosage: 25 MILLIGRAM, Q8H (INITIAL DOSE WAS 25 MG THREE TIMES A DAY)
     Route: 048
  4. PREGABALIN [Suspect]
     Active Substance: PREGABALIN
     Dosage: 25 MILLIGRAM, Q8H (INITIAL DOSE WAS 25 MG THREE TIMES A DAY)
     Route: 048
  5. PREGABALIN [Suspect]
     Active Substance: PREGABALIN
     Dosage: 50 MILLIGRAM, BID (ADJUSTED TO 50 MG TWICE A DAY)
     Dates: start: 20240710
  6. PREGABALIN [Suspect]
     Active Substance: PREGABALIN
     Dosage: 50 MILLIGRAM, BID (ADJUSTED TO 50 MG TWICE A DAY)
     Dates: start: 20240710
  7. PREGABALIN [Suspect]
     Active Substance: PREGABALIN
     Dosage: 50 MILLIGRAM, BID (ADJUSTED TO 50 MG TWICE A DAY)
     Route: 048
     Dates: start: 20240710
  8. PREGABALIN [Suspect]
     Active Substance: PREGABALIN
     Dosage: 50 MILLIGRAM, BID (ADJUSTED TO 50 MG TWICE A DAY)
     Route: 048
     Dates: start: 20240710
  9. HYDROCHLOROTHIAZIDE\TELMISARTAN [Suspect]
     Active Substance: HYDROCHLOROTHIAZIDE\TELMISARTAN
     Indication: Hypertension
     Dosage: 80 MG + 25 MG, QD
  10. HYDROCHLOROTHIAZIDE\TELMISARTAN [Suspect]
     Active Substance: HYDROCHLOROTHIAZIDE\TELMISARTAN
     Dosage: 80 MG + 25 MG, QD
     Route: 048
  11. HYDROCHLOROTHIAZIDE\TELMISARTAN [Suspect]
     Active Substance: HYDROCHLOROTHIAZIDE\TELMISARTAN
     Dosage: 80 MG + 25 MG, QD
     Route: 048
  12. HYDROCHLOROTHIAZIDE\TELMISARTAN [Suspect]
     Active Substance: HYDROCHLOROTHIAZIDE\TELMISARTAN
     Dosage: 80 MG + 25 MG, QD
  13. QUETIAPINE FUMARATE [Suspect]
     Active Substance: QUETIAPINE FUMARATE
     Indication: Mixed anxiety and depressive disorder
     Route: 048
     Dates: start: 20230116, end: 20240516
  14. QUETIAPINE FUMARATE [Suspect]
     Active Substance: QUETIAPINE FUMARATE
     Dates: start: 20230116, end: 20240516
  15. QUETIAPINE FUMARATE [Suspect]
     Active Substance: QUETIAPINE FUMARATE
     Dates: start: 20230116, end: 20240516
  16. QUETIAPINE FUMARATE [Suspect]
     Active Substance: QUETIAPINE FUMARATE
     Route: 048
     Dates: start: 20230116, end: 20240516
  17. QUETIAPINE FUMARATE [Suspect]
     Active Substance: QUETIAPINE FUMARATE
     Dates: start: 20240516, end: 20240710
  18. QUETIAPINE FUMARATE [Suspect]
     Active Substance: QUETIAPINE FUMARATE
     Dates: start: 20240516, end: 20240710
  19. QUETIAPINE FUMARATE [Suspect]
     Active Substance: QUETIAPINE FUMARATE
     Route: 048
     Dates: start: 20240516, end: 20240710
  20. QUETIAPINE FUMARATE [Suspect]
     Active Substance: QUETIAPINE FUMARATE
     Route: 048
     Dates: start: 20240516, end: 20240710
  21. QUETIAPINE FUMARATE [Suspect]
     Active Substance: QUETIAPINE FUMARATE
     Dosage: 50 MILLIGRAM, QD
     Route: 048
     Dates: start: 20240710, end: 20250226
  22. QUETIAPINE FUMARATE [Suspect]
     Active Substance: QUETIAPINE FUMARATE
     Dosage: 50 MILLIGRAM, QD
     Dates: start: 20240710, end: 20250226
  23. QUETIAPINE FUMARATE [Suspect]
     Active Substance: QUETIAPINE FUMARATE
     Dosage: 50 MILLIGRAM, QD
     Dates: start: 20240710, end: 20250226
  24. QUETIAPINE FUMARATE [Suspect]
     Active Substance: QUETIAPINE FUMARATE
     Dosage: 50 MILLIGRAM, QD
     Route: 048
     Dates: start: 20240710, end: 20250226
  25. DULOXETINE HYDROCHLORIDE [Suspect]
     Active Substance: DULOXETINE HYDROCHLORIDE
     Indication: Generalised anxiety disorder
     Dosage: 30 MILLIGRAM, QD (INITIAL DOSE WAS 30 MG A DAY)
     Dates: start: 20230907
  26. DULOXETINE HYDROCHLORIDE [Suspect]
     Active Substance: DULOXETINE HYDROCHLORIDE
     Indication: Depression
     Dosage: 30 MILLIGRAM, QD (INITIAL DOSE WAS 30 MG A DAY)
     Dates: start: 20230907
  27. DULOXETINE HYDROCHLORIDE [Suspect]
     Active Substance: DULOXETINE HYDROCHLORIDE
     Dosage: 30 MILLIGRAM, QD (INITIAL DOSE WAS 30 MG A DAY)
     Route: 048
     Dates: start: 20230907
  28. DULOXETINE HYDROCHLORIDE [Suspect]
     Active Substance: DULOXETINE HYDROCHLORIDE
     Dosage: 30 MILLIGRAM, QD (INITIAL DOSE WAS 30 MG A DAY)
     Route: 048
     Dates: start: 20230907
  29. DULOXETINE HYDROCHLORIDE [Suspect]
     Active Substance: DULOXETINE HYDROCHLORIDE
     Dosage: 60 MILLIGRAM, QD (ADJUSTED TO 60 MG A DAY)
  30. DULOXETINE HYDROCHLORIDE [Suspect]
     Active Substance: DULOXETINE HYDROCHLORIDE
     Dosage: 60 MILLIGRAM, QD (ADJUSTED TO 60 MG A DAY)
  31. DULOXETINE HYDROCHLORIDE [Suspect]
     Active Substance: DULOXETINE HYDROCHLORIDE
     Dosage: 60 MILLIGRAM, QD (ADJUSTED TO 60 MG A DAY)
     Route: 048
  32. DULOXETINE HYDROCHLORIDE [Suspect]
     Active Substance: DULOXETINE HYDROCHLORIDE
     Dosage: 60 MILLIGRAM, QD (ADJUSTED TO 60 MG A DAY)
     Route: 048

REACTIONS (8)
  - Fall [Recovering/Resolving]
  - Lumbar vertebral fracture [Recovering/Resolving]
  - Somnolence [Recovered/Resolved]
  - Dizziness [Recovered/Resolved]
  - Restless legs syndrome [Recovered/Resolved]
  - Balance disorder [Recovered/Resolved]
  - Bone contusion [Recovered/Resolved]
  - Sleep-related eating disorder [Recovered/Resolved]

NARRATIVE: CASE EVENT DATE: 20250114
